FAERS Safety Report 16128385 (Version 1)
Quarter: 2019Q1

REPORT INFORMATION
  Report Type: Spontaneous
  Country: CN (occurrence: CN)
  Receive Date: 20190328
  Receipt Date: 20190328
  Transmission Date: 20190418
  Serious: Yes (Other)
  Sender: FDA-Public Use
  Company Number: CN-BAXTER-2019BAX005986

PATIENT
  Age: 33 Year
  Sex: Male
  Weight: 60 kg

DRUGS (4)
  1. ENDOXAN [Suspect]
     Active Substance: CYCLOPHOSPHAMIDE
     Indication: ACUTE LYMPHOCYTIC LEUKAEMIA
     Dosage: PUMP INJECTION WITH 200 ML 0.9% NS
     Route: 065
     Dates: start: 20190303, end: 20190303
  2. ENDOXAN [Suspect]
     Active Substance: CYCLOPHOSPHAMIDE
     Dosage: PUMP INJECTION WITH 200 ML 0.9% NS
     Route: 065
     Dates: start: 20190304, end: 20190304
  3. 0.9% SODIUM CHLORIDE INJECTION [Suspect]
     Active Substance: SODIUM CHLORIDE
     Indication: MEDICATION DILUTION
     Dosage: PUMP INJECTION WITH 3.36 GRAM CYCLOPHOSPAHMIDE
     Route: 065
     Dates: start: 20190303, end: 20190303
  4. 0.9% SODIUM CHLORIDE INJECTION [Suspect]
     Active Substance: SODIUM CHLORIDE
     Dosage: PUMP INJECTION WITH 3.36 GRAM CYCLOPHOSPAHMIDE
     Route: 065
     Dates: start: 20190304, end: 20190304

REACTIONS (1)
  - Tachycardia [Recovered/Resolved]

NARRATIVE: CASE EVENT DATE: 20190303
